FAERS Safety Report 15015774 (Version 3)
Quarter: 2018Q3

REPORT INFORMATION
  Report Type: Spontaneous
  Country: US (occurrence: US)
  Receive Date: 20180615
  Receipt Date: 20180827
  Transmission Date: 20181010
  Serious: Yes (Hospitalization, Other)
  Sender: FDA-Public Use
  Company Number: US-SA-2018SA155128

PATIENT
  Age: 67 Year
  Sex: Female

DRUGS (2)
  1. AUBAGIO [Suspect]
     Active Substance: TERIFLUNOMIDE
     Indication: MULTIPLE SCLEROSIS
     Dosage: 14 MG, QD
     Route: 048
     Dates: start: 20180202
  2. OCREVUS [Suspect]
     Active Substance: OCRELIZUMAB

REACTIONS (14)
  - Asthenia [Not Recovered/Not Resolved]
  - Gait disturbance [Not Recovered/Not Resolved]
  - Gait inability [Unknown]
  - Heart rate decreased [Unknown]
  - Cardioversion [Unknown]
  - Peripheral swelling [Not Recovered/Not Resolved]
  - Multiple sclerosis [Unknown]
  - Anaemia [Unknown]
  - Pain [Not Recovered/Not Resolved]
  - Stent placement [Unknown]
  - Cardiac pacemaker insertion [Unknown]
  - Neuropathy peripheral [Not Recovered/Not Resolved]
  - Fall [Not Recovered/Not Resolved]
  - Fatigue [Not Recovered/Not Resolved]

NARRATIVE: CASE EVENT DATE: 2018
